FAERS Safety Report 14752533 (Version 2)
Quarter: 2018Q3

REPORT INFORMATION
  Report Type: Spontaneous
  Country: IT (occurrence: IT)
  Receive Date: 20180412
  Receipt Date: 20180702
  Transmission Date: 20181010
  Serious: Yes (Other)
  Sender: FDA-Public Use
  Company Number: IT-TEVA-2018-IT-878897

PATIENT
  Age: 18 Year
  Sex: Female

DRUGS (2)
  1. LORAZEPAM. [Suspect]
     Active Substance: LORAZEPAM
     Indication: DRUG ABUSE
     Dosage: (5 ML, TOTAL
     Route: 048
     Dates: start: 20171128, end: 20171128
  2. CARBOLITHIUM 300 MG CAPSULE RIGIDE [Suspect]
     Active Substance: LITHIUM CARBONATE
     Indication: MEDICATION ERROR
     Dosage: 300 MG CAPSULE RIGIDE
     Route: 048
     Dates: start: 20171128, end: 20171128

REACTIONS (2)
  - Medication error [Unknown]
  - Drug abuse [Unknown]

NARRATIVE: CASE EVENT DATE: 20171128
